FAERS Safety Report 5479418-4 (Version None)
Quarter: 2007Q4

REPORT INFORMATION
  Report Type: 
  Country: None (occurrence: None)
  Receive Date: 20071008
  Receipt Date: 20070925
  Transmission Date: 20080405
  Serious: Yes (Hospitalization)
  Sender: FDA-Public Use
  Company Number: DE-ABBOTT-07P-062-0418389-00

PATIENT
  Age: 52 Year
  Sex: Male
  Weight: 54 kg

DRUGS (27)
  1. ZEMPLAR [Suspect]
     Indication: HYPERPARATHYROIDISM SECONDARY
     Route: 042
     Dates: start: 20061127, end: 20070129
  2. ZEMPLAR [Suspect]
     Route: 042
     Dates: start: 20070129, end: 20070402
  3. ZEMPLAR [Suspect]
     Route: 042
     Dates: start: 20070402, end: 20070423
  4. ZEMPLAR [Suspect]
     Route: 042
     Dates: start: 20070423, end: 20070624
  5. ZEMPLAR [Suspect]
     Route: 042
     Dates: start: 20070604
  6. METOPROLOL SUCCINATE [Concomitant]
     Indication: DRUG USE FOR UNKNOWN INDICATION
     Route: 048
     Dates: start: 20061127
  7. CALCIUM ACETATE [Concomitant]
     Indication: DRUG USE FOR UNKNOWN INDICATION
     Dates: start: 20061127
  8. CALCIUM ACETATE [Concomitant]
     Route: 048
     Dates: start: 20070728
  9. ROCALCITROL [Concomitant]
     Indication: DRUG USE FOR UNKNOWN INDICATION
     Dates: start: 20061127
  10. METHYLPREDNISOLONE [Concomitant]
     Indication: DRUG USE FOR UNKNOWN INDICATION
     Route: 048
     Dates: start: 20061127
  11. TYRONAJOD 50 [Concomitant]
     Indication: DRUG USE FOR UNKNOWN INDICATION
     Route: 048
     Dates: start: 20061127
  12. NEXIUM MUPS 40 [Concomitant]
     Indication: DRUG USE FOR UNKNOWN INDICATION
     Route: 048
     Dates: start: 20061127
  13. VITARENAL [Concomitant]
     Indication: DRUG USE FOR UNKNOWN INDICATION
     Route: 048
     Dates: start: 20061127
  14. VITARENAL [Concomitant]
     Route: 048
     Dates: start: 20070728
  15. PARACETAMOL [Concomitant]
     Indication: DRUG USE FOR UNKNOWN INDICATION
     Route: 048
     Dates: start: 20061127
  16. CLOPIDOGREL BISULFATE [Concomitant]
     Indication: DRUG USE FOR UNKNOWN INDICATION
     Dosage: 75 MG
     Route: 048
     Dates: start: 20061127
  17. ATORVASTATIN CALCIUM [Concomitant]
     Indication: DRUG USE FOR UNKNOWN INDICATION
     Dosage: 40
     Route: 048
     Dates: start: 20061127
  18. DURAGESIC-100 [Concomitant]
     Indication: DRUG USE FOR UNKNOWN INDICATION
     Dosage: TC
     Dates: start: 20061127, end: 20070604
  19. DURAGESIC-100 [Concomitant]
     Dosage: TC
     Dates: start: 20070604
  20. DARBEPOETIN ALFA [Concomitant]
     Indication: DRUG USE FOR UNKNOWN INDICATION
     Route: 058
     Dates: start: 20070319
  21. CLOPIDOGREL BISULFATE [Concomitant]
     Route: 048
     Dates: start: 20070728
  22. PROTHYRIT [Concomitant]
     Indication: DRUG USE FOR UNKNOWN INDICATION
     Route: 048
     Dates: start: 20070728
  23. ESOMEPRAZOLE MAGNESIUM [Concomitant]
     Indication: DRUG USE FOR UNKNOWN INDICATION
     Route: 048
     Dates: start: 20070728
  24. CHLORMEZANONE [Concomitant]
     Indication: DRUG USE FOR UNKNOWN INDICATION
     Route: 048
     Dates: start: 20070728
  25. FERRLECIT [Concomitant]
     Indication: DRUG USE FOR UNKNOWN INDICATION
     Route: 048
     Dates: start: 20070521
  26. FLUPIRTINE MALEATE [Concomitant]
     Indication: DRUG USE FOR UNKNOWN INDICATION
     Route: 048
     Dates: start: 20061127
  27. METHYLPREDNISOLONE [Concomitant]
     Route: 048
     Dates: start: 20070728

REACTIONS (2)
  - FALL [None]
  - FRACTURE [None]
